FAERS Safety Report 7677145-6 (Version None)
Quarter: 2011Q3

REPORT INFORMATION
  Report Type: 
  Country: None (occurrence: None)
  Receive Date: 20110808
  Receipt Date: 20110725
  Transmission Date: 20111222
  Serious: Yes (Other)
  Sender: FDA-Public Use
  Company Number: GER./SPN/11/0019197

PATIENT
  Age: 17 Year
  Sex: Male

DRUGS (8)
  1. DIAZEPAM [Concomitant]
  2. PAROXETINE HCL [Concomitant]
  3. LEVOMEPROMAZINE [Concomitant]
  4. QUETIAPINE FUMARATE [Suspect]
     Indication: ANXIETY
     Dosage: INITIALLY UNKNOWN DOSE, THEN 100,200,400; 100 MG,  IN 1 D
  5. QUETIAPINE FUMARATE [Suspect]
     Indication: DEPRESSION
     Dosage: INITIALLY UNKNOWN DOSE, THEN 100,200,400; 100 MG,  IN 1 D
  6. SERTRALINE HYDROCHLORIDE [Suspect]
     Indication: PRODUCT USED FOR UNKNOWN INDICATION
     Dosage: 150 MG, 50 MG MORNING AND 100  MG AT NIGHT
  7. FLUOXETINE [Concomitant]
  8. LORAZEPAM [Concomitant]

REACTIONS (4)
  - SELF-INJURIOUS IDEATION [None]
  - DRUG INTERACTION [None]
  - CONDITION AGGRAVATED [None]
  - DYSKINESIA [None]
